FAERS Safety Report 7046041-X (Version None)
Quarter: 2010Q4

REPORT INFORMATION
  Report Type: 
  Country: None (occurrence: None)
  Receive Date: 20101013
  Receipt Date: 20101013
  Transmission Date: 20110411
  Serious: Yes (Life-Threatening)
  Sender: FDA-Public Use
  Company Number: None

PATIENT
  Age: 59 Year
  Sex: Male
  Weight: 29.0302 kg

DRUGS (1)
  1. ZOLPIDEM [Suspect]
     Indication: INSOMNIA
     Dosage: ONE TABLET ONCE PO
     Route: 048

REACTIONS (7)
  - CONTUSION [None]
  - FALL [None]
  - HAEMATOMA [None]
  - IMPAIRED WORK ABILITY [None]
  - RIB FRACTURE [None]
  - SKELETAL INJURY [None]
  - SOMNAMBULISM [None]
